FAERS Safety Report 8104653-6 (Version None)
Quarter: 2012Q1

REPORT INFORMATION
  Report Type: 
  Country: None (occurrence: None)
  Receive Date: 20120130
  Receipt Date: 20120118
  Transmission Date: 20120608
  Serious: Yes (Disabling)
  Sender: FDA-Public Use
  Company Number: 2012MA001124

PATIENT
  Age: 86 Year
  Sex: Male

DRUGS (4)
  1. ACETYLSALICYLIC ACID SRT [Concomitant]
  2. DOXAZOSIN MESYLATE [Suspect]
     Indication: HYPERTENSION
     Dosage: 1 MG; QD; PO
     Route: 048
     Dates: start: 20101001
  3. ATORVASTATIN CALCIUM [Concomitant]
  4. METOPROLOL [Concomitant]

REACTIONS (2)
  - SWELLING FACE [None]
  - CHOLESTASIS [None]
